FAERS Safety Report 6176645-8 (Version None)
Quarter: 2009Q2

REPORT INFORMATION
  Report Type: 
  Country: None (occurrence: None)
  Receive Date: 20090501
  Receipt Date: 20081023
  Transmission Date: 20091009
  Serious: Yes (Other)
  Sender: FDA-Public Use
  Company Number: FR-ALEXION-A200800278

PATIENT

DRUGS (11)
  1. SOLIRIS [Suspect]
     Indication: PAROXYSMAL NOCTURNAL HAEMOGLOBINURIA
     Route: 042
     Dates: start: 20070101
  2. ZELITREX                           /01269701/ [Concomitant]
     Indication: HERPES VIRUS INFECTION
     Dosage: 500 MG X 2, QD
     Route: 048
  3. ORACILLINE                         /00001801/ [Concomitant]
     Indication: PROPHYLAXIS
     Dosage: 1000000 IU X 2 QD
     Route: 048
  4. SPECIAFOLDINE [Concomitant]
     Dosage: 2 UNK, QD
     Route: 048
  5. NEORAL [Concomitant]
     Dosage: 120 MG, 2/DAY
  6. MOPRAL                             /00661201/ [Concomitant]
     Dosage: 20 MG, UNK
     Route: 048
  7. PREVISCAN                          /00261401/ [Concomitant]
     Indication: THROMBOSIS PROPHYLAXIS
     Route: 048
  8. CERAZETTE                          /00754001/ [Concomitant]
  9. LEXOMIL [Concomitant]
     Route: 048
  10. FLECAINE [Concomitant]
     Dosage: LP 100
     Route: 048
  11. ISOCARD                            /00586302/ [Concomitant]
     Dosage: UNK, PRN

REACTIONS (2)
  - APHASIA [None]
  - CONFUSIONAL STATE [None]
